FAERS Safety Report 9410999 (Version 1)
Quarter: 2013Q3

REPORT INFORMATION
  Report Type: Spontaneous
  Country: US (occurrence: US)
  Receive Date: 20130719
  Receipt Date: 20130719
  Transmission Date: 20140515
  Serious: No
  Sender: FDA-Public Use
  Company Number: US-TEVA-411848USA

PATIENT
  Age: 39 Year
  Sex: Female
  Weight: 91.71 kg

DRUGS (3)
  1. PARAGARD 380A [Suspect]
     Indication: CONTRACEPTION
     Dates: start: 20130503, end: 20130610
  2. CYMBALTA [Concomitant]
     Indication: DEPRESSION
     Dosage: 20 MILLIGRAM DAILY;
     Route: 048
  3. CYMBALTA [Concomitant]
     Indication: ANXIETY

REACTIONS (1)
  - Device expulsion [Recovered/Resolved]
